FAERS Safety Report 7617596-9 (Version None)
Quarter: 2011Q3

REPORT INFORMATION
  Report Type: 
  Country: None (occurrence: None)
  Receive Date: 20110718
  Receipt Date: 20110705
  Transmission Date: 20111222
  Serious: Yes (Other)
  Sender: FDA-Public Use
  Company Number: US-JNJFOC-20110702750

PATIENT
  Age: 65 Year
  Sex: Female
  Weight: 55.79 kg

DRUGS (4)
  1. LISINOPRIL [Concomitant]
     Indication: HYPERTENSION
     Route: 065
  2. LEVOXYL [Concomitant]
     Indication: THYROID DISORDER
     Route: 065
  3. SUDAFED 12 HOUR [Suspect]
     Indication: SINUS CONGESTION
     Dosage: AS DIRECTED
     Route: 048
  4. SUDAFED 12 HOUR [Suspect]
     Route: 048

REACTIONS (1)
  - SWELLING FACE [None]
